FAERS Safety Report 8621364-9 (Version None)
Quarter: 2012Q3

REPORT INFORMATION
  Report Type: 
  Country: None (occurrence: None)
  Receive Date: 20120824
  Receipt Date: 20120816
  Transmission Date: 20120928
  Serious: Yes (Hospitalization, Other)
  Sender: FDA-Public Use
  Company Number: CA-ROCHE-GNE303236

PATIENT
  Sex: Female
  Weight: 83.4 kg

DRUGS (8)
  1. XOLAIR [Suspect]
     Dates: start: 20111207
  2. AVELOX [Suspect]
     Indication: PRODUCT USED FOR UNKNOWN INDICATION
  3. XOLAIR [Suspect]
     Dates: start: 20090619
  4. ALVESCO [Concomitant]
     Indication: PRODUCT USED FOR UNKNOWN INDICATION
  5. XOLAIR [Suspect]
     Indication: ASTHMA
     Dosage: 300 MG, Q2W, VIAL
     Route: 058
     Dates: start: 20090422
  6. SYMBICORT [Concomitant]
     Indication: PRODUCT USED FOR UNKNOWN INDICATION
  7. SINGULAIR [Concomitant]
     Indication: PRODUCT USED FOR UNKNOWN INDICATION
  8. PREDNISONE TAB [Concomitant]
     Indication: PRODUCT USED FOR UNKNOWN INDICATION
     Route: 065

REACTIONS (14)
  - NASAL POLYPS [None]
  - HYPOAESTHESIA ORAL [None]
  - PAIN IN EXTREMITY [None]
  - DIZZINESS [None]
  - ASTHMA [None]
  - PHARYNGEAL OEDEMA [None]
  - BLOOD PRESSURE DECREASED [None]
  - COUGH [None]
  - DYSPNOEA [None]
  - STRESS [None]
  - RASH PRURITIC [None]
  - PRURITUS [None]
  - UPPER RESPIRATORY TRACT INFECTION [None]
  - CHEST DISCOMFORT [None]
